FAERS Safety Report 5166643-5 (Version None)
Quarter: 2006Q4

REPORT INFORMATION
  Report Type: 
  Country: None (occurrence: None)
  Receive Date: 20061207
  Receipt Date: 20060928
  Transmission Date: 20070319
  Serious: Yes (Hospitalization)
  Sender: FDA-Public Use
  Company Number: FRWYE068928SEP06

PATIENT
  Sex: Female

DRUGS (2)
  1. ENBREL [Suspect]
     Indication: PSORIASIS
     Route: 058
     Dates: start: 20060908, end: 20060928
  2. INSULIN [Concomitant]
     Indication: DIABETES MELLITUS
     Dosage: UNKNOWN

REACTIONS (6)
  - CONDITION AGGRAVATED [None]
  - DRUG ERUPTION [None]
  - ERYTHEMA [None]
  - PRURITUS [None]
  - PSORIASIS [None]
  - SKIN EXFOLIATION [None]
